FAERS Safety Report 4564045-3 (Version None)
Quarter: 2005Q1

REPORT INFORMATION
  Report Type: 
  Country: None (occurrence: None)
  Receive Date: 20050128
  Receipt Date: 20041025
  Transmission Date: 20050727
  Serious: No
  Sender: FDA-Public Use
  Company Number: US-BRISTOL-MYERS SQUIBB COMPANY-12744017

PATIENT
  Age: 35 Year
  Sex: Male
  Weight: 136 kg

DRUGS (3)
  1. CEFZIL [Suspect]
     Indication: EAR PAIN
     Route: 048
     Dates: start: 20041018
  2. ALLEGRA-D [Concomitant]
  3. MULTI-VITAMIN [Concomitant]

REACTIONS (2)
  - APHTHOUS STOMATITIS [None]
  - PAIN [None]
